FAERS Safety Report 8196784-X (Version None)
Quarter: 2012Q1

REPORT INFORMATION
  Report Type: 
  Country: None (occurrence: None)
  Receive Date: 20120309
  Receipt Date: 20120306
  Transmission Date: 20120608
  Serious: Yes (Other)
  Sender: FDA-Public Use
  Company Number: US-PFIZER INC-2008041660

PATIENT
  Sex: Female

DRUGS (11)
  1. CHANTIX [Suspect]
     Dosage: 1 MG, 2X/DAY
     Route: 048
     Dates: start: 20100901
  2. ADVAIR DISKUS 100/50 [Concomitant]
     Indication: EMPHYSEMA
  3. CHANTIX [Suspect]
     Dosage: 0.5 MG DAILY
     Route: 048
  4. CHANTIX [Suspect]
     Dosage: UNK
     Route: 048
  5. CYMBALTA [Concomitant]
     Dosage: 60 MG, 1X/DAY
  6. CHANTIX [Suspect]
     Indication: SMOKING CESSATION THERAPY
     Dosage: UNK
     Route: 048
     Dates: start: 20080301
  7. CHANTIX [Suspect]
     Dosage: UNK
     Route: 048
     Dates: start: 20100903, end: 20100901
  8. NEURONTIN [Concomitant]
     Dosage: 800 MG, 4X/DAY
  9. ALBUTEROL [Concomitant]
     Indication: CHRONIC OBSTRUCTIVE PULMONARY DISEASE
     Dosage: 2.5 MG, 4X/DAY
  10. ALBUTEROL [Concomitant]
     Indication: EMPHYSEMA
  11. ADVAIR DISKUS 100/50 [Concomitant]
     Indication: CHRONIC OBSTRUCTIVE PULMONARY DISEASE
     Dosage: 250 UG, 2X/DAY

REACTIONS (6)
  - NAUSEA [None]
  - DEPRESSION [None]
  - HEADACHE [None]
  - RASH [None]
  - DERMATITIS BULLOUS [None]
  - WEIGHT DECREASED [None]
